FAERS Safety Report 7363807-7 (Version None)
Quarter: 2011Q1

REPORT INFORMATION
  Report Type: 
  Country: None (occurrence: None)
  Receive Date: 20110321
  Receipt Date: 20110315
  Transmission Date: 20110831
  Serious: Yes (Other)
  Sender: FDA-Public Use
  Company Number: US-AMGEN-QUU401987

PATIENT
  Age: 49 Year
  Sex: Male
  Weight: 124.4 kg

DRUGS (8)
  1. CYCLOPHOSPHAMIDE [Concomitant]
  2. ASCORBIC ACID [Concomitant]
     Dosage: UNK UNK, QD
  3. PREDNISONE [Concomitant]
  4. METFORMIN HYDROCHLORIDE [Concomitant]
     Dosage: 1000 MG, UNK
  5. CORTICOSTEROIDS [Concomitant]
  6. NPLATE [Suspect]
     Indication: IDIOPATHIC THROMBOCYTOPENIC PURPURA
     Dosage: 8 A?G/KG, QWK
     Route: 058
     Dates: start: 20080918, end: 20100409
  7. FELODIPINE [Concomitant]
     Dosage: 5 MG, UNK
  8. FUROSEMIDE [Concomitant]
     Dosage: 20 MG, UNK

REACTIONS (2)
  - THROMBOCYTOPENIA [None]
  - BONE MARROW RETICULIN FIBROSIS [None]
